FAERS Safety Report 14913799 (Version 1)
Quarter: 2018Q2

REPORT INFORMATION
  Report Type: Spontaneous
  Country: FR (occurrence: FR)
  Receive Date: 20180518
  Receipt Date: 20180518
  Transmission Date: 20180711
  Serious: Yes (Hospitalization)
  Sender: FDA-Public Use
  Company Number: PHHY2018FR002526

PATIENT
  Age: 52 Year
  Sex: Male
  Weight: 78.5 kg

DRUGS (1)
  1. SECUKINUMAB. [Suspect]
     Active Substance: SECUKINUMAB
     Indication: PSORIASIS
     Dosage: 300 MG, QMO (EVERY 4 WEEKS)
     Route: 065
     Dates: start: 201703, end: 20180123

REACTIONS (1)
  - Gangrene [Recovering/Resolving]

NARRATIVE: CASE EVENT DATE: 20180108
